FAERS Safety Report 12795479 (Version 2)
Quarter: 2016Q4

REPORT INFORMATION
  Report Type: Spontaneous
  Country: US (occurrence: US)
  Receive Date: 20160929
  Receipt Date: 20161017
  Transmission Date: 20170207
  Serious: Yes (Other)
  Sender: FDA-Public Use
  Company Number: US-SMITH AND NEPHEW, INC-2016SMT00836

PATIENT
  Age: 59 Year
  Sex: Female

DRUGS (2)
  1. REGRANEX [Suspect]
     Active Substance: BECAPLERMIN
     Indication: WOUND
     Dosage: UNK, 1X/DAY
     Route: 061
     Dates: start: 201609, end: 201609
  2. UNSPECIFIED DEPRESSION PILL [Concomitant]

REACTIONS (3)
  - Amputation [Recovered/Resolved with Sequelae]
  - Wound complication [Not Recovered/Not Resolved]
  - Wound infection [Not Recovered/Not Resolved]

NARRATIVE: CASE EVENT DATE: 201609
